FAERS Safety Report 5913548-5 (Version None)
Quarter: 2008Q4

REPORT INFORMATION
  Report Type: 
  Country: None (occurrence: None)
  Receive Date: 20081007
  Receipt Date: 20080924
  Transmission Date: 20090506
  Serious: Yes (Other)
  Sender: FDA-Public Use
  Company Number: 20317

PATIENT
  Age: 85 Year
  Sex: Female

DRUGS (2)
  1. METHOTREXATE [Suspect]
  2. ENBREL [Suspect]
     Indication: RHEUMATOID ARTHRITIS
     Dosage: 50 MG OTH SC
     Route: 058

REACTIONS (3)
  - DEHYDRATION [None]
  - GASTROENTERITIS [None]
  - PALPITATIONS [None]
